FAERS Safety Report 8560100-1 (Version None)
Quarter: 2012Q3

REPORT INFORMATION
  Report Type: 
  Country: None (occurrence: None)
  Receive Date: 20120723
  Receipt Date: 20120702
  Transmission Date: 20120928
  Serious: Yes (Death, Other)
  Sender: FDA-Public Use
  Company Number: EUS-2012-00487

PATIENT
  Age: 21 Year
  Sex: Male

DRUGS (1)
  1. ASPARAGINASE (UNSPECIFIED) (ASPARAGINASE) (UNKNOWN) [Suspect]
     Indication: B PRECURSOR TYPE ACUTE LEUKAEMIA

REACTIONS (6)
  - SEPSIS [None]
  - NEOPLASM PROGRESSION [None]
  - PANCREATIC PSEUDOCYST [None]
  - DIABETIC KETOACIDOSIS [None]
  - HYPERGLYCAEMIA [None]
  - B PRECURSOR TYPE ACUTE LEUKAEMIA [None]
